FAERS Safety Report 5669021-5 (Version None)
Quarter: 2008Q1

REPORT INFORMATION
  Report Type: 
  Country: None (occurrence: None)
  Receive Date: 20080317
  Receipt Date: 20080204
  Transmission Date: 20080703
  Serious: No
  Sender: FDA-Public Use
  Company Number: US-BAYER-200716568NA

PATIENT
  Age: 57 Year
  Sex: Male

DRUGS (11)
  1. LEVITRA [Suspect]
     Indication: ERECTILE DYSFUNCTION
     Dosage: TOTAL DAILY DOSE: 20 MG  UNIT DOSE: 20 MG
     Route: 048
     Dates: start: 20071215, end: 20071215
  2. LEVITRA [Suspect]
     Route: 048
     Dates: start: 20070201
  3. LEVITRA [Suspect]
     Route: 048
     Dates: start: 20071201, end: 20071201
  4. LEVITRA [Suspect]
     Route: 048
     Dates: start: 20071201, end: 20071201
  5. ADVAIR DISKUS 100/50 [Concomitant]
  6. TRAZODONE HCL [Concomitant]
  7. WELLBUTRIN [Concomitant]
  8. AMANTADINE HCL [Concomitant]
  9. RISPERDAL [Concomitant]
  10. ALLEGRA [Concomitant]
  11. FLONASE [Concomitant]

REACTIONS (2)
  - ERECTILE DYSFUNCTION [None]
  - SPONTANEOUS PENILE ERECTION [None]
